FAERS Safety Report 16544718 (Version 2)
Quarter: 2019Q3

REPORT INFORMATION
  Report Type: Spontaneous
  Country: US (occurrence: US)
  Receive Date: 20190709
  Receipt Date: 20190912
  Transmission Date: 20191004
  Serious: Yes (Other)
  Sender: FDA-Public Use
  Company Number: US-BIOGEN-2019BI00759372

PATIENT
  Age: 62 Year
  Sex: Male

DRUGS (1)
  1. TYSABRI [Suspect]
     Active Substance: NATALIZUMAB
     Indication: MULTIPLE SCLEROSIS
     Route: 042
     Dates: start: 20130409

REACTIONS (5)
  - Irritable bowel syndrome [Unknown]
  - Vertigo [Unknown]
  - Urinary tract infection [Unknown]
  - Crohn^s disease [Unknown]
  - Liver function test decreased [Unknown]

NARRATIVE: CASE EVENT DATE: 20190605
